FAERS Safety Report 20492576 (Version 1)
Quarter: 2022Q1

REPORT INFORMATION
  Report Type: Report from Study
  Country: US (occurrence: US)
  Receive Date: 20220219
  Receipt Date: 20220219
  Transmission Date: 20220423
  Serious: Yes (Other)
  Sender: FDA-Public Use
  Company Number: US-UCBSA-2022003229

PATIENT
  Age: 56 Year
  Sex: Female

DRUGS (1)
  1. CERTOLIZUMAB PEGOL [Suspect]
     Active Substance: CERTOLIZUMAB PEGOL
     Indication: Rheumatoid arthritis
     Dosage: 400 MILLIGRAM, EV 2 WEEKS(QOW)
     Dates: start: 20220112, end: 20220207

REACTIONS (20)
  - Blood glucose decreased [Recovering/Resolving]
  - Abdominal discomfort [Not Recovered/Not Resolved]
  - Nausea [Not Recovered/Not Resolved]
  - Pain [Not Recovered/Not Resolved]
  - Gastrooesophageal reflux disease [Not Recovered/Not Resolved]
  - Ocular discomfort [Not Recovered/Not Resolved]
  - Dry skin [Not Recovered/Not Resolved]
  - Vision blurred [Not Recovered/Not Resolved]
  - Tunnel vision [Not Recovered/Not Resolved]
  - Hot flush [Recovering/Resolving]
  - Pollakiuria [Recovering/Resolving]
  - Migraine [Recovering/Resolving]
  - Hyperaesthesia teeth [Not Recovered/Not Resolved]
  - Temperature intolerance [Not Recovered/Not Resolved]
  - Feeling cold [Not Recovered/Not Resolved]
  - Dyspnoea [Recovering/Resolving]
  - Weight fluctuation [Not Recovered/Not Resolved]
  - Blood pressure increased [Recovering/Resolving]
  - Abdominal pain upper [Recovering/Resolving]
  - Cold sweat [Recovering/Resolving]

NARRATIVE: CASE EVENT DATE: 20220101
